FAERS Safety Report 5271006-8 (Version None)
Quarter: 2007Q1

REPORT INFORMATION
  Report Type: 
  Country: None (occurrence: None)
  Receive Date: 20061214
  Receipt Date: 20051128
  Transmission Date: 20070707
  Serious: Yes (Hospitalization)
  Sender: FDA-Public Use
  Company Number: 2005066689

PATIENT
  Age: 70 Year
  Sex: Female
  Weight: 82.5547 kg

DRUGS (4)
  1. BEXTRA [Suspect]
     Indication: ARTHRITIS
     Dosage: 10 MG (10 MG, 1 IN 1 D), ORAL
     Route: 048
     Dates: start: 20040101
  2. BEXTRA [Suspect]
     Indication: PAIN IN EXTREMITY
     Dosage: 10 MG (10 MG, 1 IN 1 D), ORAL
     Route: 048
     Dates: start: 20040101
  3. DILTIAZEM [Suspect]
     Indication: ATRIAL FIBRILLATION
     Dates: start: 20050401, end: 20050401
  4. DILTIAZEM [Suspect]
     Indication: TACHYCARDIA
     Dates: start: 20050401, end: 20050401

REACTIONS (2)
  - ATRIAL FIBRILLATION [None]
  - FEELING ABNORMAL [None]
